FAERS Safety Report 12499295 (Version 2)
Quarter: 2016Q3

REPORT INFORMATION
  Report Type: Spontaneous
  Country: US (occurrence: US)
  Receive Date: 20160627
  Receipt Date: 20160705
  Transmission Date: 20161109
  Serious: No
  Sender: FDA-Public Use
  Company Number: US-BIOGEN-2016BI00253614

PATIENT
  Sex: Female

DRUGS (2)
  1. TECFIDERA [Suspect]
     Active Substance: DIMETHYL FUMARATE
     Indication: MULTIPLE SCLEROSIS
     Route: 048
     Dates: start: 20130624
  2. TECFIDERA [Suspect]
     Active Substance: DIMETHYL FUMARATE

REACTIONS (3)
  - Diarrhoea [Recovered/Resolved]
  - Tremor [Not Recovered/Not Resolved]
  - Gastric disorder [Recovered/Resolved]
